FAERS Safety Report 16767648 (Version 1)
Quarter: 2019Q4

REPORT INFORMATION
  Report Type: Spontaneous
  Country: US (occurrence: US)
  Receive Date: 20190903
  Receipt Date: 20190903
  Transmission Date: 20200122
  Serious: No
  Sender: FDA-Public Use
  Company Number: None

PATIENT
  Sex: Female
  Weight: 74.7 kg

DRUGS (1)
  1. CAPECITABINE. [Suspect]
     Active Substance: CAPECITABINE
     Indication: BREAST CANCER FEMALE
     Route: 048
     Dates: start: 20160913, end: 20190805

REACTIONS (5)
  - Skin disorder [None]
  - Tooth infection [None]
  - Ocular hyperaemia [None]
  - Diarrhoea [None]
  - Skin discolouration [None]
